FAERS Safety Report 6120839-4 (Version None)
Quarter: 2009Q1

REPORT INFORMATION
  Report Type: 
  Country: None (occurrence: None)
  Receive Date: 20090317
  Receipt Date: 20090305
  Transmission Date: 20090719
  Serious: Yes (Hospitalization)
  Sender: FDA-Public Use
  Company Number: AT-ROCHE-619312

PATIENT
  Age: 71 Year
  Sex: Male
  Weight: 63 kg

DRUGS (4)
  1. BONIVA [Suspect]
     Indication: OSTEOPOROSIS
     Dosage: REPORTED DOSE: 3MG/3ML.
     Route: 042
     Dates: start: 20070531, end: 20080610
  2. DIGITOXIN TAB [Concomitant]
     Dosage: REPORTED FREQ.: 1-0-1
     Dates: start: 20070101, end: 20070901
  3. OLEOVIT [Concomitant]
     Dosage: REPORTED DRUG: OLEOVIT D3.
     Dates: start: 20070503
  4. OSTEOCAL [Concomitant]
     Dosage: REPORTED FREQ.: 1-0-1. REPORTED DRUG: OSTEOKALZ VIT D3.
     Dates: start: 20070503

REACTIONS (3)
  - FEELING ABNORMAL [None]
  - ISCHAEMIC STROKE [None]
  - OCULAR DISCOMFORT [None]
